FAERS Safety Report 9867736 (Version 2)
Quarter: 2014Q1

REPORT INFORMATION
  Report Type: Spontaneous
  Country: DE (occurrence: DE)
  Receive Date: 20140204
  Receipt Date: 20140204
  Transmission Date: 20141002
  Serious: Yes (Life-Threatening, Other)
  Sender: FDA-Public Use
  Company Number: DE-009507513-1402DEU001184

PATIENT
  Age: 62 Year
  Sex: Male
  Weight: 120 kg

DRUGS (9)
  1. SIMVASTATIN [Suspect]
     Indication: CORONARY ARTERY DISEASE
     Dosage: UNK
     Route: 048
  2. CLOPIDOGREL [Suspect]
     Indication: CORONARY ARTERIAL STENT INSERTION
     Dosage: UNK
  3. ASPIRIN [Concomitant]
  4. AMLODIPINE [Concomitant]
     Dosage: UNK
  5. ALLOPURINOL [Concomitant]
     Dosage: UNK
  6. VALSARTAN [Concomitant]
     Dosage: UNK
  7. TORSEMIDE [Concomitant]
     Dosage: UNK
  8. BELOC-ZOK [Concomitant]
     Dosage: UNK
  9. DOXAZOSIN MESYLATE [Concomitant]
     Dosage: UNK

REACTIONS (2)
  - Renal failure acute [Not Recovered/Not Resolved]
  - Subacute hepatic failure [Not Recovered/Not Resolved]
